FAERS Safety Report 9495472 (Version 3)
Quarter: 2014Q2

REPORT INFORMATION
  Report Type: Spontaneous
  Country: US (occurrence: US)
  Receive Date: 20130903
  Receipt Date: 20140502
  Transmission Date: 20141212
  Serious: Yes (Hospitalization)
  Sender: FDA-Public Use
  Company Number: US-BAYER-2013-105059

PATIENT
  Age: 21 Year
  Sex: Female
  Weight: 58.96 kg

DRUGS (1)
  1. MIRENA [Suspect]
     Indication: CONTRACEPTION
     Dosage: 20 MCG/24HR, CONT
     Route: 015
     Dates: start: 20110217, end: 20111223

REACTIONS (8)
  - Uterine perforation [None]
  - Ectopic pregnancy with contraceptive device [None]
  - Abdominal discomfort [None]
  - Injury [None]
  - Medical device pain [None]
  - Infection [None]
  - Drug ineffective [None]
  - Depression [None]
